FAERS Safety Report 8244255-4 (Version None)
Quarter: 2012Q1

REPORT INFORMATION
  Report Type: 
  Country: None (occurrence: None)
  Receive Date: 20120329
  Receipt Date: 20120321
  Transmission Date: 20120608
  Serious: Yes (Death, Hospitalization)
  Sender: FDA-Public Use
  Company Number: US-ACTELION-A-US2012-59685

PATIENT

DRUGS (2)
  1. TRACLEER [Suspect]
     Indication: PULMONARY ARTERIAL HYPERTENSION
     Dosage: UNK
     Route: 048
     Dates: start: 20110418
  2. REVATIO [Concomitant]

REACTIONS (4)
  - PNEUMONIA [None]
  - TREATMENT NONCOMPLIANCE [None]
  - DEATH [None]
  - PULMONARY HYPERTENSION [None]
